FAERS Safety Report 14545103 (Version 4)
Quarter: 2019Q4

REPORT INFORMATION
  Report Type: Report from Study
  Country: US (occurrence: US)
  Receive Date: 20180218
  Receipt Date: 20191205
  Transmission Date: 20200122
  Serious: Yes (Other)
  Sender: FDA-Public Use
  Company Number: US-TEVA-2018-US-854772

PATIENT
  Age: 55 Year
  Sex: Male

DRUGS (1)
  1. AUSTEDO [Suspect]
     Active Substance: DEUTETRABENAZINE
     Indication: HUNTINGTON^S DISEASE
     Dosage: 24 MILLIGRAM DAILY;
     Route: 065
     Dates: start: 20171217

REACTIONS (8)
  - Contusion [Unknown]
  - Balance disorder [Unknown]
  - Pain in extremity [Unknown]
  - Hip fracture [Unknown]
  - Fall [Unknown]
  - Product supply issue [Unknown]
  - Memory impairment [Recovering/Resolving]
  - Arthralgia [Unknown]

NARRATIVE: CASE EVENT DATE: 20180115
